FAERS Safety Report 7335866-9 (Version None)
Quarter: 2011Q1

REPORT INFORMATION
  Report Type: 
  Country: None (occurrence: None)
  Receive Date: 20110307
  Receipt Date: 20110228
  Transmission Date: 20110831
  Serious: Yes (Hospitalization)
  Sender: FDA-Public Use
  Company Number: IE-MEDIMMUNE-MEDI-0012756

PATIENT
  Sex: Male
  Weight: 5.82 kg

DRUGS (3)
  1. FERROUS SULFATE TAB [Concomitant]
  2. SYNAGIS [Suspect]
     Route: 030
     Dates: start: 20101015
  3. KAPSOVIT [Concomitant]

REACTIONS (1)
  - LOWER RESPIRATORY TRACT INFECTION [None]
